FAERS Safety Report 4879531-6 (Version None)
Quarter: 2006Q1

REPORT INFORMATION
  Report Type: 
  Country: None (occurrence: None)
  Receive Date: 20060111
  Receipt Date: 20051229
  Transmission Date: 20060701
  Serious: Yes (Other)
  Sender: FDA-Public Use
  Company Number: 805#9#2005#00111

PATIENT
  Age: 13 Day
  Sex: Male

DRUGS (9)
  1. ALPROSTADIL [Suspect]
     Indication: HEART DISEASE CONGENITAL
     Dosage: SEE IMAGE
     Route: 041
     Dates: start: 20050409, end: 20050416
  2. ALPROSTADIL [Suspect]
     Indication: HEART DISEASE CONGENITAL
     Dosage: SEE IMAGE
     Route: 041
     Dates: start: 20050417, end: 20050507
  3. ALPROSTADIL [Suspect]
     Indication: HEART DISEASE CONGENITAL
     Dosage: SEE IMAGE
     Route: 041
     Dates: start: 20050508, end: 20050517
  4. VITAMIN (VITAMINS NOS) [Concomitant]
  5. FUROSEMIDE [Concomitant]
  6. SPIRONOLACTONE [Concomitant]
  7. PROPANOLOL HYDROCHLORIDE [Concomitant]
  8. CEFMETAZOLE SODIUM [Concomitant]
  9. ADENOSINE 5-TRIPHOSPHATE DISODIUM (ADENOSINE TRIPHOSPHATE, DISODIUM SA [Concomitant]

REACTIONS (2)
  - BLOOD ALKALINE PHOSPHATASE INCREASED [None]
  - SUPRAVENTRICULAR TACHYCARDIA [None]
